FAERS Safety Report 22386460 (Version 1)
Quarter: 2023Q2

REPORT INFORMATION
  Report Type: Spontaneous
  Country: RU (occurrence: RU)
  Receive Date: 20230531
  Receipt Date: 20230531
  Transmission Date: 20230722
  Serious: Yes (Life-Threatening)
  Sender: FDA-Public Use
  Company Number: None

PATIENT
  Age: 16 Year
  Sex: Male
  Weight: 52 kg

DRUGS (1)
  1. FIASP [Suspect]
     Active Substance: INSULIN ASPART
     Indication: Type 1 diabetes mellitus
     Dosage: 7 IU, TID (7-7-7)
     Route: 058
     Dates: start: 20221201, end: 20230101

REACTIONS (2)
  - Hyperglycaemia [Recovering/Resolving]
  - Ketonuria [Recovering/Resolving]

NARRATIVE: CASE EVENT DATE: 20221205
